FAERS Safety Report 25974532 (Version 1)
Quarter: 2025Q4

REPORT INFORMATION
  Report Type: Spontaneous
  Country: US (occurrence: US)
  Receive Date: 20251029
  Receipt Date: 20251029
  Transmission Date: 20260118
  Serious: Yes (Other)
  Sender: ALEXION PHARMACEUTICALS
  Company Number: US-AstraZeneca-CH-00977973A

PATIENT
  Sex: Female

DRUGS (1)
  1. TRUQAP [Suspect]
     Active Substance: CAPIVASERTIB
     Indication: HER2 positive breast cancer
     Dosage: UNK
     Route: 065

REACTIONS (1)
  - Malignant neoplasm progression [Unknown]
